FAERS Safety Report 6960807-3 (Version None)
Quarter: 2010Q3

REPORT INFORMATION
  Report Type: 
  Country: None (occurrence: None)
  Receive Date: 20100901
  Receipt Date: 20100830
  Transmission Date: 20110219
  Serious: Yes (Hospitalization)
  Sender: FDA-Public Use
  Company Number: US-ROCHE-723696

PATIENT
  Sex: Female
  Weight: 112 kg

DRUGS (11)
  1. TRASTUZUMAB [Suspect]
     Indication: BREAST CANCER
     Dosage: FORM: VIAL, DOSE LEVEL: 8
     Route: 042
  2. DOCETAXEL [Suspect]
     Indication: BREAST CANCER
     Dosage: DOSE LEVEL: 75
     Route: 042
     Dates: start: 20100813
  3. CARBOPLATIN [Suspect]
     Indication: BREAST CANCER
     Dosage: DOSE LEVEL: 6, LAST DOSE PRIOR TO SAE: 13 AUG 2010, UINIT: AUC, FORM:VIAL
     Route: 042
     Dates: start: 20100813
  4. BENICAR [Concomitant]
     Dates: start: 20100513, end: 20100823
  5. IRON [Concomitant]
     Dates: start: 20100803
  6. COMPAZINE [Concomitant]
     Dosage: PRN
     Dates: start: 20100816, end: 20100816
  7. DEXMETHSONE [Concomitant]
     Dates: start: 20100812, end: 20100812
  8. RANITIDINE [Concomitant]
     Dates: start: 20100810
  9. EMEND [Concomitant]
     Dosage: TRI PACK
     Dates: start: 20100813, end: 20100815
  10. ZOFRAN [Concomitant]
     Dosage: PRN
     Dates: start: 20100816, end: 20100818
  11. EMLA [Concomitant]
     Dosage: PROPHYLAXIS
     Dates: start: 20100813, end: 20100813

REACTIONS (1)
  - RENAL FAILURE ACUTE [None]
